FAERS Safety Report 13014777 (Version 1)
Quarter: 2016Q4

REPORT INFORMATION
  Report Type: Spontaneous
  Country: JP (occurrence: JP)
  Receive Date: 20161209
  Receipt Date: 20161209
  Transmission Date: 20170207
  Serious: Yes (Other)
  Sender: FDA-Public Use
  Company Number: JP-009507513-1612JPN004807

PATIENT
  Age: 47 Year

DRUGS (24)
  1. EMEND [Suspect]
     Active Substance: APREPITANT
     Dosage: 80 MG, DAILY
     Route: 048
  2. DEXAMETHASONE SODIUM PHOSPHATE. [Suspect]
     Active Substance: DEXAMETHASONE SODIUM PHOSPHATE
     Dosage: 9.9 MG/BODY, DAILY
     Route: 042
  3. DEXAMETHASONE. [Suspect]
     Active Substance: DEXAMETHASONE
     Dosage: 4 MG/BOD, DAILY
  4. EMEND [Suspect]
     Active Substance: APREPITANT
     Dosage: 125 MG, DAILY
     Route: 048
  5. GLACTIV [Concomitant]
     Active Substance: SITAGLIPTIN
  6. PALONOSETRON HYDROCHLORIDE. [Concomitant]
     Active Substance: PALONOSETRON HYDROCHLORIDE
  7. INSULIN [Concomitant]
     Active Substance: INSULIN NOS
  8. EMEND [Suspect]
     Active Substance: APREPITANT
     Dosage: 125 MG, DAILY
     Route: 048
  9. DEXAMETHASONE. [Suspect]
     Active Substance: DEXAMETHASONE
     Dosage: 4 MG/BOD, DAILY
  10. FLUOROURACIL. [Concomitant]
     Active Substance: FLUOROURACIL
     Dosage: UNK
  11. EPIRUBICIN HYDROCHLORIDE. [Concomitant]
     Active Substance: EPIRUBICIN HYDROCHLORIDE
     Dosage: UNK
  12. GRANISETRON [Concomitant]
     Active Substance: GRANISETRON
  13. EMEND [Suspect]
     Active Substance: APREPITANT
     Dosage: 80 MG, DAILY
     Route: 048
  14. EMEND [Suspect]
     Active Substance: APREPITANT
     Indication: PROPHYLAXIS OF NAUSEA AND VOMITING
     Dosage: 125 MG, DAILY
     Route: 048
  15. EMEND [Suspect]
     Active Substance: APREPITANT
     Dosage: 80 MG, DAILY
     Route: 048
  16. EMEND [Suspect]
     Active Substance: APREPITANT
     Dosage: 80 MG, DAILY
     Route: 048
  17. DEXAMETHASONE SODIUM PHOSPHATE. [Suspect]
     Active Substance: DEXAMETHASONE SODIUM PHOSPHATE
     Dosage: 9.9 MG/BODY, DAILY
     Route: 042
  18. DEXAMETHASONE. [Suspect]
     Active Substance: DEXAMETHASONE
     Indication: PROPHYLAXIS OF NAUSEA AND VOMITING
     Dosage: 4 MG/BOD, DAILY
  19. DEXAMETHASONE SODIUM PHOSPHATE. [Suspect]
     Active Substance: DEXAMETHASONE SODIUM PHOSPHATE
     Dosage: 9.9 MG/BODY, DAILY
     Route: 042
  20. CYCLOPHOSPHAMIDE. [Concomitant]
     Active Substance: CYCLOPHOSPHAMIDE
     Dosage: UNK
  21. EMEND [Suspect]
     Active Substance: APREPITANT
     Dosage: 125 MG, DAILY
     Route: 048
  22. DEXAMETHASONE SODIUM PHOSPHATE. [Suspect]
     Active Substance: DEXAMETHASONE SODIUM PHOSPHATE
     Indication: PROPHYLAXIS OF NAUSEA AND VOMITING
     Dosage: 9.9 MG/BODY, DAILY
     Route: 042
  23. DEXAMETHASONE. [Suspect]
     Active Substance: DEXAMETHASONE
     Dosage: 4 MG/BOD, DAILY
  24. PACLITAXEL. [Concomitant]
     Active Substance: PACLITAXEL

REACTIONS (3)
  - Bone marrow failure [Unknown]
  - Glycosylated haemoglobin increased [Recovered/Resolved]
  - Glycosylated haemoglobin increased [Unknown]
